FAERS Safety Report 13792672 (Version 1)
Quarter: 2017Q3

REPORT INFORMATION
  Report Type: Spontaneous
  Country: US (occurrence: US)
  Receive Date: 20170726
  Receipt Date: 20170726
  Transmission Date: 20171127
  Serious: Yes (Hospitalization, Other)
  Sender: FDA-Public Use
  Company Number: US-PFIZER INC-2017320397

PATIENT
  Age: 76 Year
  Sex: Female

DRUGS (1)
  1. METOPROLOL TARTRATE. [Suspect]
     Active Substance: METOPROLOL TARTRATE
     Dosage: 20 MG, UNK

REACTIONS (5)
  - Throat irritation [Unknown]
  - Atrial fibrillation [Unknown]
  - Hypertension [Unknown]
  - Drug ineffective [Unknown]
  - Cardiac failure congestive [Unknown]
